FAERS Safety Report 19451658 (Version 1)
Quarter: 2021Q2

REPORT INFORMATION
  Report Type: Spontaneous
  Country: FR (occurrence: FR)
  Receive Date: 20210623
  Receipt Date: 20210623
  Transmission Date: 20210717
  Serious: Yes (Life-Threatening, Other)
  Sender: FDA-Public Use
  Company Number: FR-AMGEN-FRASP2021092403

PATIENT

DRUGS (3)
  1. PREDNISOLONE. [Concomitant]
     Active Substance: PREDNISOLONE
     Dosage: 6.5 MILLIGRAM
  2. ADALIMUMAB [Suspect]
     Active Substance: ADALIMUMAB
     Indication: NEUROSARCOIDOSIS
     Dosage: 40 MILLIGRAM, Q2WK
     Route: 065
     Dates: start: 201805
  3. ADALIMUMAB [Suspect]
     Active Substance: ADALIMUMAB
     Indication: OFF LABEL USE

REACTIONS (12)
  - Hepatitis E [Unknown]
  - Dermatophytosis [Unknown]
  - Dermo-hypodermitis [Unknown]
  - Off label use [Unknown]
  - Lower respiratory tract infection [Unknown]
  - Therapy non-responder [Unknown]
  - Limb injury [Unknown]
  - Diverticulitis [Unknown]
  - Wound infection [Unknown]
  - Pyrexia [Unknown]
  - Urinary tract infection [Unknown]
  - Epilepsy [Unknown]

NARRATIVE: CASE EVENT DATE: 201805
